FAERS Safety Report 26110940 (Version 2)
Quarter: 2025Q4

REPORT INFORMATION
  Report Type: Report from Study
  Country: US (occurrence: None)
  Receive Date: 20251202
  Receipt Date: 20251219
  Transmission Date: 20260117
  Serious: Yes (Hospitalization, Other)
  Sender: UCB
  Company Number: US-UCBSA-2025034746

PATIENT
  Age: 2 Year

DRUGS (6)
  1. FENFLURAMINE [Suspect]
     Active Substance: FENFLURAMINE
     Indication: Severe myoclonic epilepsy of infancy
     Dosage: 2.2 MILLILITER, 2X/DAY (BID)
     Route: 061
  2. FENFLURAMINE [Suspect]
     Active Substance: FENFLURAMINE
     Dosage: 2.2 MILLILITER, 2X/DAY (BID)
     Route: 061
  3. FENFLURAMINE [Suspect]
     Active Substance: FENFLURAMINE
     Dosage: 2.5 MILLILITER, 2X/DAY (BID)
     Route: 061
  4. FYCOMPA [Concomitant]
     Active Substance: PERAMPANEL
     Indication: Seizure
     Dosage: UNK, 2X/DAY (BID)
  5. PHENOBARBITAL [Concomitant]
     Active Substance: PHENOBARBITAL
     Indication: Seizure
     Dosage: UNK, 2X/DAY (BID)
  6. BRIVIACT [Concomitant]
     Active Substance: BRIVARACETAM
     Indication: Seizure
     Dosage: UNK, 2X/DAY (BID)

REACTIONS (9)
  - Seizure [Recovered/Resolved]
  - Vagal nerve stimulator implantation [Recovered/Resolved]
  - Partial seizures [Unknown]
  - Viral infection [Recovered/Resolved]
  - Gastrointestinal tube insertion [Recovered/Resolved]
  - Illness [Unknown]
  - Immune system disorder [Unknown]
  - Nasopharyngitis [Not Recovered/Not Resolved]
  - Viral upper respiratory tract infection [Not Recovered/Not Resolved]
